FAERS Safety Report 5233239-6 (Version None)
Quarter: 2007Q1

REPORT INFORMATION
  Report Type: 
  Country: None (occurrence: None)
  Receive Date: 20070206
  Receipt Date: 20070125
  Transmission Date: 20070707
  Serious: Yes (Other)
  Sender: FDA-Public Use
  Company Number: 232202

PATIENT
  Age: 88 Year
  Sex: Male

DRUGS (8)
  1. RANIBIZUMAB (RANIBIZUMAB) PWDR + SOLVENT, INJECTION SOLN [Suspect]
     Indication: MACULAR DEGENERATION
     Dosage: 0.5 MG, SINGLE, INTRAVITREAL
     Dates: start: 20060410
  2. XALATAN EYE GTTS. (LATANOPROST) [Concomitant]
  3. LYRICA [Concomitant]
  4. TOBRAMYCIN [Concomitant]
  5. ICAPS (MULTIVITAMINS NOS) [Concomitant]
  6. MULTIVITAMIN (MULTIVITAMINS NOS) [Concomitant]
  7. VITAMIN B50 (VITAMIN B50) [Concomitant]
  8. LIDODERM [Concomitant]

REACTIONS (6)
  - DNA ANTIBODY POSITIVE [None]
  - EYE PAIN [None]
  - GENERAL PHYSICAL HEALTH DETERIORATION [None]
  - HAEMORRHAGE [None]
  - HALLUCINATION, VISUAL [None]
  - SJOGREN'S SYNDROME [None]
